FAERS Safety Report 4441216-8 (Version None)
Quarter: 2004Q3

REPORT INFORMATION
  Report Type: 
  Country: None (occurrence: None)
  Receive Date: 20040728
  Receipt Date: 20040407
  Transmission Date: 20050211
  Serious: No
  Sender: FDA-Public Use
  Company Number: USA040464329

PATIENT
  Age: 13 Year
  Sex: Female
  Weight: 56 kg

DRUGS (3)
  1. STRATTERA [Suspect]
     Indication: ATTENTION DEFICIT/HYPERACTIVITY DISORDER
     Dosage: 40 MG DAY
     Dates: start: 20030201
  2. MULTI-VITAMIN [Concomitant]
  3. ZINC [Concomitant]

REACTIONS (2)
  - ACNE [None]
  - HIRSUTISM [None]
